FAERS Safety Report 8049967-3 (Version None)
Quarter: 2012Q1

REPORT INFORMATION
  Report Type: 
  Country: None (occurrence: None)
  Receive Date: 20120117
  Receipt Date: 20120111
  Transmission Date: 20120608
  Serious: Yes (Other)
  Sender: FDA-Public Use
  Company Number: US-PFIZER INC-2012008770

PATIENT
  Sex: Male
  Weight: 94.331 kg

DRUGS (5)
  1. COUMADIN [Concomitant]
     Dosage: UNK
  2. VICODIN [Concomitant]
     Dosage: 750 MG, UNK
  3. PLAQUENIL [Concomitant]
     Dosage: 200 MG, 2X/DAY
  4. VIAGRA [Suspect]
     Indication: CARDIOVASCULAR DISORDER
     Dosage: 25 MG, 2X/DAY
     Route: 048
     Dates: start: 20100401, end: 20111201
  5. CELEXA [Concomitant]
     Dosage: UNK

REACTIONS (3)
  - SYSTEMIC LUPUS ERYTHEMATOSUS [None]
  - PAIN IN EXTREMITY [None]
  - RAYNAUD'S PHENOMENON [None]
